FAERS Safety Report 25415284 (Version 1)
Quarter: 2025Q2

REPORT INFORMATION
  Report Type: Spontaneous
  Country: US (occurrence: US)
  Receive Date: 20250610
  Receipt Date: 20250610
  Transmission Date: 20250717
  Serious: No
  Sender: SANOFI AVENTIS
  Company Number: US-SA-2025SA161379

PATIENT
  Sex: Male
  Weight: 18.55 kg

DRUGS (1)
  1. DUPIXENT [Suspect]
     Active Substance: DUPILUMAB
     Indication: Eosinophilic oesophagitis
     Dosage: 200 MG, QOW

REACTIONS (4)
  - Illness [Unknown]
  - Pyrexia [Unknown]
  - Productive cough [Unknown]
  - Eating disorder [Unknown]
